FAERS Safety Report 17772632 (Version 2)
Quarter: 2020Q2

REPORT INFORMATION
  Report Type: Spontaneous
  Country: TR (occurrence: TR)
  Receive Date: 20200512
  Receipt Date: 20200518
  Transmission Date: 20200714
  Serious: Yes (Other)
  Sender: FDA-Public Use
  Company Number: TR-BAYER-2020-017126

PATIENT
  Age: 38 Year
  Sex: Female
  Weight: 60 kg

DRUGS (1)
  1. QLAIRISTA [Suspect]
     Active Substance: DIENOGEST\ESTRADIOL VALERATE
     Indication: CONTRACEPTION
     Dosage: UNK
     Route: 048
     Dates: start: 201908, end: 20200127

REACTIONS (6)
  - Pregnancy on oral contraceptive [Recovered/Resolved]
  - Abnormal withdrawal bleeding [None]
  - Abortion induced [None]
  - Uterine haemorrhage [None]
  - Uterine disorder [None]
  - Drug ineffective [None]

NARRATIVE: CASE EVENT DATE: 20191228
